FAERS Safety Report 7560806-7 (Version None)
Quarter: 2011Q2

REPORT INFORMATION
  Report Type: 
  Country: None (occurrence: None)
  Receive Date: 20110621
  Receipt Date: 20110610
  Transmission Date: 20111010
  Serious: Yes (Other)
  Sender: FDA-Public Use
  Company Number: CA-ROCHE-757291

PATIENT
  Sex: Male
  Weight: 70 kg

DRUGS (3)
  1. METHOTREXATE [Concomitant]
  2. INSULIN [Concomitant]
  3. TOCILIZUMAB [Suspect]
     Indication: RHEUMATOID ARTHRITIS
     Route: 042
     Dates: start: 20101101

REACTIONS (2)
  - AMPUTATION [None]
  - GANGRENE [None]
